FAERS Safety Report 5212508-X (Version None)
Quarter: 2007Q1

REPORT INFORMATION
  Report Type: 
  Country: None (occurrence: None)
  Receive Date: 20070118
  Receipt Date: 20070112
  Transmission Date: 20070707
  Serious: Yes (Death, Life-Threatening, Hospitalization)
  Sender: FDA-Public Use
  Company Number: CO-ABBOTT-06P-036-0354112-00

PATIENT
  Sex: Female
  Weight: 55 kg

DRUGS (8)
  1. AVONEX [Suspect]
     Indication: MULTIPLE SCLEROSIS
     Route: 030
     Dates: start: 20010101, end: 20060718
  2. AZATHIOPRINE [Suspect]
     Indication: MULTIPLE SCLEROSIS
     Route: 048
     Dates: start: 20060514, end: 20060702
  3. GABAPENTIN [Concomitant]
     Indication: NEURALGIA
     Route: 048
     Dates: start: 20050501, end: 20060501
  4. PREGABALINE [Concomitant]
     Indication: NEURALGIA
     Route: 048
     Dates: start: 20050501, end: 20060501
  5. CORTISONE PULSE THERAPY [Concomitant]
     Indication: MULTIPLE SCLEROSIS RELAPSE
     Dosage: PULSE THERAPY
     Route: 042
  6. CALCIUM [Concomitant]
     Indication: OSTEOPOROSIS
     Route: 048
     Dates: start: 20040101, end: 20060501
  7. PREDNISOLONE [Concomitant]
     Indication: MULTIPLE SCLEROSIS
     Route: 048
  8. ALENDRONATE SODIUM [Concomitant]
     Indication: OSTEOPOROSIS
     Route: 048
     Dates: start: 20050501, end: 20060501

REACTIONS (2)
  - SEPSIS [None]
  - URINARY TRACT INFECTION [None]
